FAERS Safety Report 18613293 (Version 1)
Quarter: 2020Q4

REPORT INFORMATION
  Report Type: Spontaneous
  Country: US (occurrence: US)
  Receive Date: 20201214
  Receipt Date: 20201214
  Transmission Date: 20210114
  Serious: No
  Sender: FDA-Public Use
  Company Number: US-NOVOPROD-700850

PATIENT
  Sex: Male

DRUGS (1)
  1. LEVEMIR [Suspect]
     Active Substance: INSULIN DETEMIR
     Indication: DIABETES MELLITUS
     Dosage: 20 IU, BID
     Route: 058

REACTIONS (4)
  - Diabetic neuropathy [Unknown]
  - Blood glucose increased [Recovering/Resolving]
  - Device failure [Unknown]
  - Condition aggravated [Unknown]
